FAERS Safety Report 16471936 (Version 2)
Quarter: 2019Q3

REPORT INFORMATION
  Report Type: Spontaneous
  Country: LV (occurrence: LV)
  Receive Date: 20190625
  Receipt Date: 20190709
  Transmission Date: 20191004
  Serious: Yes (Hospitalization)
  Sender: FDA-Public Use
  Company Number: LV-009507513-1906LVA008768

PATIENT
  Age: 55 Year
  Sex: Female

DRUGS (1)
  1. ZEPATIER [Suspect]
     Active Substance: ELBASVIR\GRAZOPREVIR
     Indication: HEPATITIS C
     Dosage: UNK
     Route: 048
     Dates: start: 201906, end: 201906

REACTIONS (2)
  - Hypertension [Not Recovered/Not Resolved]
  - Glomerular filtration rate decreased [Not Recovered/Not Resolved]

NARRATIVE: CASE EVENT DATE: 201906
